FAERS Safety Report 19441169 (Version 1)
Quarter: 2021Q2

REPORT INFORMATION
  Report Type: Spontaneous
  Country: ES (occurrence: ES)
  Receive Date: 20210621
  Receipt Date: 20210621
  Transmission Date: 20210717
  Serious: Yes (Life-Threatening, Hospitalization)
  Sender: FDA-Public Use
  Company Number: ES-TEVA-2021-ES-1923064

PATIENT
  Age: 77 Year
  Sex: Female

DRUGS (2)
  1. MORFINA SERRA 10 MG/ML SOLUCION INYECTABLE, 10 AMPOLLAS DE 1 ML [Interacting]
     Active Substance: MORPHINE HYDROCHLORIDE
     Indication: BACK PAIN
     Dosage: AMPOULES
     Route: 042
     Dates: start: 20200326, end: 20200327
  2. BUPRENORFINA (814A) [Suspect]
     Active Substance: BUPRENORPHINE
     Route: 062
     Dates: start: 2021, end: 20210302

REACTIONS (5)
  - Inappropriate schedule of product administration [Recovered/Resolved]
  - Drug interaction [Unknown]
  - Acute respiratory failure [Recovered/Resolved]
  - Acute kidney injury [Recovered/Resolved]
  - Depressed level of consciousness [Recovered/Resolved]

NARRATIVE: CASE EVENT DATE: 20200327
